FAERS Safety Report 4532059-5 (Version None)
Quarter: 2004Q4

REPORT INFORMATION
  Report Type: 
  Country: None (occurrence: None)
  Receive Date: 20041217
  Receipt Date: 20041202
  Transmission Date: 20050328
  Serious: Yes (Life-Threatening, Hospitalization)
  Sender: FDA-Public Use
  Company Number: 2004-0007769

PATIENT
  Age: 38 Year
  Sex: Male
  Weight: 50 kg

DRUGS (7)
  1. VIREAD [Suspect]
     Indication: HIV INFECTION
     Dosage: 300 MG, 1 IN 1 D, ORAL
     Route: 048
     Dates: start: 20031122, end: 20041025
  2. COMBIVIR [Concomitant]
  3. KALETRA [Concomitant]
  4. VIDEX [Concomitant]
  5. BACTRIM [Concomitant]
  6. METHADONE HCL [Concomitant]
  7. ADVIL [Concomitant]

REACTIONS (5)
  - GLOMERULONEPHRITIS [None]
  - HAEMOGLOBIN DECREASED [None]
  - RENAL FAILURE [None]
  - RENAL TUBULAR NECROSIS [None]
  - WEIGHT DECREASED [None]
